FAERS Safety Report 13558409 (Version 3)
Quarter: 2017Q3

REPORT INFORMATION
  Report Type: Spontaneous
  Country: US (occurrence: US)
  Receive Date: 20170518
  Receipt Date: 20170707
  Transmission Date: 20171127
  Serious: No
  Sender: FDA-Public Use
  Company Number: US-GLAXOSMITHKLINE-US2017071959

PATIENT
  Sex: Female

DRUGS (1)
  1. VENTOLIN HFA [Suspect]
     Active Substance: ALBUTEROL SULFATE
     Indication: SEASONAL ALLERGY
     Dosage: UNK
     Route: 055
     Dates: start: 2015

REACTIONS (3)
  - Therapeutic response decreased [Unknown]
  - Product quality issue [Unknown]
  - Product use in unapproved indication [Unknown]
